FAERS Safety Report 9171795 (Version 1)
Quarter: 2013Q1

REPORT INFORMATION
  Report Type: Spontaneous
  Country: DE (occurrence: DE)
  Receive Date: 20130319
  Receipt Date: 20130319
  Transmission Date: 20140127
  Serious: Yes (Hospitalization, Other)
  Sender: FDA-Public Use
  Company Number: DE-AMGEN-DEUSP2013018690

PATIENT
  Age: 67 Year
  Sex: Female

DRUGS (5)
  1. ENBREL [Suspect]
     Indication: PSORIATIC ARTHROPATHY
     Dosage: 50 MG, 2X/WEEK
     Dates: start: 20081220
  2. LANTAREL [Concomitant]
     Dosage: 10 MG, UNK
     Route: 058
  3. DOLORMIN                           /00109201/ [Concomitant]
     Dosage: UNK
  4. METFORMIN [Concomitant]
     Dosage: 850 MG, UNK, (1-0-1)
  5. COAPROVEL [Concomitant]
     Dosage: UNK

REACTIONS (2)
  - Joint injury [Not Recovered/Not Resolved]
  - Upper limb fracture [Not Recovered/Not Resolved]
